FAERS Safety Report 8257150 (Version 2)
Quarter: 2013Q4

REPORT INFORMATION
  Report Type: Spontaneous
  Country: BR (occurrence: BR)
  Receive Date: 20111121
  Receipt Date: 20131231
  Transmission Date: 20140711
  Serious: Yes (Other)
  Sender: FDA-Public Use
  Company Number: BR-ROCHE-1013615

PATIENT
  Sex: Female
  Weight: 79 kg

DRUGS (8)
  1. XOLAIR [Suspect]
     Indication: ASTHMA
     Route: 058
     Dates: start: 20100819
  2. XOLAIR [Suspect]
     Route: 065
     Dates: start: 20110801
  3. XOLAIR [Suspect]
     Route: 065
     Dates: start: 20111103
  4. COMBIVENT [Concomitant]
  5. FORASEQ (BRAZIL) [Concomitant]
     Dosage: 12/400 UG
     Route: 065
  6. AEROLIN [Concomitant]
     Route: 065
  7. BUDESONIDE/FORMOTEROL FUMARATE [Concomitant]
     Route: 065
  8. SPIRIVA [Concomitant]
     Route: 065
     Dates: start: 201310

REACTIONS (21)
  - Hypersensitivity [Not Recovered/Not Resolved]
  - Bronchitis [Not Recovered/Not Resolved]
  - Influenza [Not Recovered/Not Resolved]
  - Wheezing [Not Recovered/Not Resolved]
  - Malaise [Not Recovered/Not Resolved]
  - Dyspnoea [Recovering/Resolving]
  - Pyrexia [Not Recovered/Not Resolved]
  - Pain [Not Recovered/Not Resolved]
  - Asthma [Not Recovered/Not Resolved]
  - Headache [Not Recovered/Not Resolved]
  - Diarrhoea [Not Recovered/Not Resolved]
  - Poor quality sleep [Not Recovered/Not Resolved]
  - Asthenia [Not Recovered/Not Resolved]
  - General physical health deterioration [Unknown]
  - Rhinitis allergic [Not Recovered/Not Resolved]
  - Dysphonia [Unknown]
  - Sneezing [Unknown]
  - Rhinorrhoea [Unknown]
  - Sinusitis [Not Recovered/Not Resolved]
  - Cough [Not Recovered/Not Resolved]
  - Fatigue [Not Recovered/Not Resolved]
